FAERS Safety Report 20600288 (Version 2)
Quarter: 2022Q2

REPORT INFORMATION
  Report Type: Report from Study
  Country: JP (occurrence: JP)
  Receive Date: 20220316
  Receipt Date: 20220628
  Transmission Date: 20220720
  Serious: No
  Sender: FDA-Public Use
  Company Number: JP-BRISTOL-MYERS SQUIBB COMPANY-BMS-2022-039436

PATIENT
  Age: 73 Year
  Sex: Male
  Weight: 63.7 kg

DRUGS (6)
  1. IPILIMUMAB [Suspect]
     Active Substance: IPILIMUMAB
     Indication: Non-small cell lung cancer recurrent
     Route: 042
     Dates: start: 20210401, end: 20210519
  2. IPILIMUMAB [Suspect]
     Active Substance: IPILIMUMAB
     Route: 041
     Dates: start: 20210831
  3. NIVOLUMAB [Suspect]
     Active Substance: NIVOLUMAB
     Indication: Non-small cell lung cancer recurrent
     Route: 042
     Dates: start: 20210401, end: 20210609
  4. NIVOLUMAB [Suspect]
     Active Substance: NIVOLUMAB
     Route: 041
     Dates: start: 20210831
  5. CARBOPLATIN [Suspect]
     Active Substance: CARBOPLATIN
     Indication: Non-small cell lung cancer recurrent
     Route: 065
     Dates: start: 20210401, end: 20210422
  6. PEMETREXED DISODIUM [Suspect]
     Active Substance: PEMETREXED DISODIUM
     Indication: Non-small cell lung cancer recurrent
     Route: 065
     Dates: start: 20210401, end: 20210422

REACTIONS (1)
  - Hypopituitarism [Recovering/Resolving]

NARRATIVE: CASE EVENT DATE: 20210629
